APPROVED DRUG PRODUCT: TOPOTECAN HYDROCHLORIDE
Active Ingredient: TOPOTECAN HYDROCHLORIDE
Strength: EQ 4MG BASE/VIAL
Dosage Form/Route: INJECTABLE;INJECTION
Application: A091284 | Product #001 | TE Code: AP
Applicant: SAGENT PHARMACEUTICALS INC
Approved: Jan 26, 2011 | RLD: No | RS: No | Type: RX